FAERS Safety Report 8209929-X (Version None)
Quarter: 2012Q1

REPORT INFORMATION
  Report Type: 
  Country: None (occurrence: None)
  Receive Date: 20120314
  Receipt Date: 20111122
  Transmission Date: 20120608
  Serious: No
  Sender: FDA-Public Use
  Company Number: US-ASTRAZENECA-2011SE56751

PATIENT
  Age: 61 Year
  Sex: Male

DRUGS (2)
  1. HYDROCHLOROTHIAZIDE [Concomitant]
  2. TOPROL-XL [Suspect]
     Route: 048
     Dates: start: 20010101

REACTIONS (4)
  - HYPERTENSION [None]
  - DIZZINESS [None]
  - DRUG DOSE OMISSION [None]
  - HEADACHE [None]
